FAERS Safety Report 24768978 (Version 1)
Quarter: 2024Q4

REPORT INFORMATION
  Report Type: Spontaneous
  Country: GB (occurrence: GB)
  Receive Date: 20241224
  Receipt Date: 20241224
  Transmission Date: 20250115
  Serious: Yes (Other)
  Sender: TEVA
  Company Number: None

PATIENT
  Age: 40 Year
  Sex: Female
  Weight: 76 kg

DRUGS (1)
  1. MONTELUKAST [Suspect]
     Active Substance: MONTELUKAST SODIUM
     Indication: Urticaria
     Route: 065

REACTIONS (4)
  - Depressed mood [Recovering/Resolving]
  - Sleep terror [Recovering/Resolving]
  - Anxiety [Recovering/Resolving]
  - Nightmare [Recovered/Resolved]
